FAERS Safety Report 6388756-2 (Version None)
Quarter: 2009Q4

REPORT INFORMATION
  Report Type: 
  Country: None (occurrence: None)
  Receive Date: 20091005
  Receipt Date: 20090513
  Transmission Date: 20100525
  Serious: Yes (Death, Other)
  Sender: FDA-Public Use
  Company Number: US-BAYER-200921458NA

PATIENT
  Age: 71 Year
  Sex: Female
  Weight: 58 kg

DRUGS (26)
  1. MAGNEVIST [Suspect]
     Indication: ANGIOGRAM
     Dates: start: 20060724, end: 20060724
  2. OMNISCAN [Suspect]
     Indication: ANGIOGRAM
     Route: 042
     Dates: start: 20061003, end: 20061003
  3. DOXEPIN HCL [Concomitant]
  4. LASIX [Concomitant]
  5. ZANTAC [Concomitant]
  6. COUMADIN [Concomitant]
  7. ENALAPRIL MALEATE [Concomitant]
  8. ^LEXPRO^ (INTERPRETED AS LEXAPRO) [Concomitant]
  9. GABAPENTIN [Concomitant]
  10. ALLEGRA [Concomitant]
  11. RENAGEL [Concomitant]
  12. EPOGEN [Concomitant]
  13. TYLENOL (CAPLET) [Concomitant]
  14. BENADRYL [Concomitant]
  15. ACYCLOVIR [Concomitant]
  16. PLAVIX [Concomitant]
  17. PEPCID [Concomitant]
  18. NEPRO [Concomitant]
  19. GARAMYCIN [Concomitant]
  20. TOBRADEX [Concomitant]
  21. ZOCOR [Concomitant]
  22. AUGMENTIN [Concomitant]
  23. PROSTAT 101 [Concomitant]
  24. CONTRAST [Concomitant]
     Indication: ANGIOGRAM
     Dates: start: 20070301, end: 20070301
  25. CONTRAST [Concomitant]
     Dates: start: 20060227, end: 20060227
  26. LOPRESSOR [Concomitant]

REACTIONS (18)
  - ERYTHEMA [None]
  - JOINT CONTRACTURE [None]
  - JOINT RANGE OF MOTION DECREASED [None]
  - JOINT STIFFNESS [None]
  - MOBILITY DECREASED [None]
  - NEPHROGENIC SYSTEMIC FIBROSIS [None]
  - OEDEMA PERIPHERAL [None]
  - PAIN [None]
  - PAIN IN EXTREMITY [None]
  - PAIN OF SKIN [None]
  - PRURITUS [None]
  - RASH [None]
  - SCAR [None]
  - SKIN EXFOLIATION [None]
  - SKIN HYPERPIGMENTATION [None]
  - SKIN HYPERTROPHY [None]
  - SKIN INDURATION [None]
  - SKIN TIGHTNESS [None]
